FAERS Safety Report 6159433-8 (Version None)
Quarter: 2009Q2

REPORT INFORMATION
  Report Type: 
  Country: None (occurrence: None)
  Receive Date: 20090417
  Receipt Date: 20090410
  Transmission Date: 20091009
  Serious: Yes (Other)
  Sender: FDA-Public Use
  Company Number: US-ASTRAZENECA-2008UW27512

PATIENT
  Age: 673 Month
  Sex: Male
  Weight: 172.4 kg

DRUGS (24)
  1. SEROQUEL [Suspect]
     Indication: ANXIETY
     Dosage: 25 MG TO 1000 MG
     Route: 048
     Dates: start: 20060601, end: 20080601
  2. SEROQUEL [Suspect]
     Indication: SLEEP DISORDER
     Dosage: 25 MG TO 1000 MG
     Route: 048
     Dates: start: 20060601, end: 20080601
  3. WELLBUTRIN [Concomitant]
  4. NAPROXEN [Concomitant]
  5. CYCLOBENZAPRINE [Concomitant]
  6. PROVIGIL [Concomitant]
  7. TEMAZEPAM [Concomitant]
  8. FUROSEMIDE [Concomitant]
  9. KLOR-CON [Concomitant]
  10. METOPROLOL TARTRATE [Concomitant]
  11. CAPTOPRIL [Concomitant]
  12. IBUPROFEN [Concomitant]
  13. ASPIRIN [Concomitant]
  14. MIRTAZAPINE [Concomitant]
  15. DEPAKOTE [Concomitant]
  16. CYMBALTA [Concomitant]
  17. TOPAMAX [Concomitant]
  18. LEVOTHYROXINE SODIUM [Concomitant]
  19. VERAPAMIL [Concomitant]
  20. RANITIDINE [Concomitant]
  21. ROPINIROLE [Concomitant]
  22. PROAIR HFA [Concomitant]
  23. LEXAPRO [Concomitant]
  24. AMBIEN [Concomitant]

REACTIONS (2)
  - DIABETES MELLITUS [None]
  - VOCAL CORD DISORDER [None]
